FAERS Safety Report 16898773 (Version 1)
Quarter: 2019Q4

REPORT INFORMATION
  Report Type: Spontaneous
  Country: AU (occurrence: AU)
  Receive Date: 20191009
  Receipt Date: 20191009
  Transmission Date: 20200122
  Serious: Yes (Other)
  Sender: FDA-Public Use
  Company Number: AU-ELI_LILLY_AND_COMPANY-AU201909014416

PATIENT
  Age: 76 Year
  Sex: Male

DRUGS (1)
  1. CIALIS [Suspect]
     Active Substance: TADALAFIL
     Indication: THROMBOSIS
     Dosage: UNK UNK, UNKNOWN
     Route: 065

REACTIONS (5)
  - Neuropathy peripheral [Unknown]
  - Blood pressure decreased [Unknown]
  - Off label use [Unknown]
  - Diabetes mellitus [Unknown]
  - Pulse absent [Unknown]
